FAERS Safety Report 5244133-9 (Version None)
Quarter: 2007Q1

REPORT INFORMATION
  Report Type: 
  Country: None (occurrence: None)
  Receive Date: 20061201
  Receipt Date: 20060829
  Transmission Date: 20070707
  Serious: No
  Sender: FDA-Public Use
  Company Number: 2006PV020450

PATIENT
  Age: 65 Year
  Sex: Female
  Weight: 113.3993 kg

DRUGS (6)
  1. BYETTA [Suspect]
     Indication: DIABETES MELLITUS NON-INSULIN-DEPENDENT
     Dosage: SEE IMAGE
     Route: 058
     Dates: start: 20050101, end: 20050101
  2. BYETTA [Suspect]
     Indication: DIABETES MELLITUS NON-INSULIN-DEPENDENT
     Dosage: SEE IMAGE
     Route: 058
     Dates: start: 20050101
  3. METHOTREXATE [Suspect]
     Indication: PSORIASIS
     Dosage: 25 MG;QW
     Dates: start: 20060101
  4. LANTUS [Concomitant]
  5. GLIPIZIDE [Concomitant]
  6. FOLIC ACID [Concomitant]

REACTIONS (8)
  - ALOPECIA [None]
  - ARTHRALGIA [None]
  - DRUG INEFFECTIVE FOR UNAPPROVED INDICATION [None]
  - FALL [None]
  - GAIT DISTURBANCE [None]
  - GOUT [None]
  - PHLEBITIS [None]
  - PSORIASIS [None]
